FAERS Safety Report 12450005 (Version 3)
Quarter: 2016Q3

REPORT INFORMATION
  Report Type: Report from Study
  Country: CN (occurrence: CN)
  Receive Date: 20160609
  Receipt Date: 20160722
  Transmission Date: 20161109
  Serious: Yes (Hospitalization)
  Sender: FDA-Public Use
  Company Number: CN-AMGEN-CHNCT2016072812

PATIENT
  Age: 48 Year
  Sex: Female

DRUGS (7)
  1. VITAMIN C [Concomitant]
     Active Substance: ASCORBIC ACID
     Indication: GINGIVAL BLEEDING
     Dosage: 3 G, UNK
     Route: 042
     Dates: start: 20160530
  2. CARBAZOCHROME SODIUM SULFONATE [Concomitant]
     Active Substance: CARBAZOCHROME SODIUM SULFONATE
     Indication: GINGIVAL BLEEDING
     Dosage: 80 MG, UNK
     Route: 042
     Dates: start: 20160530
  3. COENZYME COMPLEX [Concomitant]
     Active Substance: UNSPECIFIED INGREDIENT
     Indication: GINGIVAL BLEEDING
     Dosage: 0.1 MG, QD
     Route: 042
     Dates: start: 20160530
  4. PROTAMINE [Concomitant]
     Active Substance: PROTAMINE
     Indication: TYPE 2 DIABETES MELLITUS
     Dosage: 26 UNIT, UNK
     Route: 065
  5. ROMIPLOSTIM - KHK [Suspect]
     Active Substance: ROMIPLOSTIM
     Indication: IMMUNE THROMBOCYTOPENIC PURPURA
     Dosage: UNK
     Route: 025
     Dates: start: 20160125, end: 20160615
  6. ETAMSYLATE [Concomitant]
     Active Substance: ETHAMSYLATE
     Indication: GINGIVAL BLEEDING
     Dosage: 3 G, UNK
     Route: 042
     Dates: start: 20160530
  7. PROTAMINE RECOMBINANT HUMAN INSULIN [Concomitant]
     Indication: TYPE 2 DIABETES MELLITUS
     Dosage: 26 UNIT, UNK
     Route: 065

REACTIONS (1)
  - Haemorrhage [Unknown]

NARRATIVE: CASE EVENT DATE: 20160529
